FAERS Safety Report 8025135-6 (Version None)
Quarter: 2012Q1

REPORT INFORMATION
  Report Type: 
  Country: None (occurrence: None)
  Receive Date: 20120105
  Receipt Date: 20120104
  Transmission Date: 20120608
  Serious: Yes (Other)
  Sender: FDA-Public Use
  Company Number: CA-ROCHE-1022701

PATIENT
  Sex: Female
  Weight: 78.088 kg

DRUGS (9)
  1. RABEPRAZOLE SODIUM [Concomitant]
  2. CALCIUM ACETATE [Concomitant]
  3. VENTOLIN [Concomitant]
  4. MELOXICAM [Concomitant]
  5. FOLIC ACID [Concomitant]
  6. ACTEMRA [Suspect]
     Indication: RHEUMATOID ARTHRITIS
     Route: 042
     Dates: start: 20110831
  7. TYLENOL-500 [Concomitant]
     Indication: PAIN
  8. METHOTREXATE [Concomitant]
     Route: 048
  9. ADVAIR DISKUS 100/50 [Concomitant]

REACTIONS (1)
  - ASTHMA [None]
